FAERS Safety Report 6315600-1 (Version None)
Quarter: 2009Q3

REPORT INFORMATION
  Report Type: 
  Country: None (occurrence: None)
  Receive Date: 20090818
  Receipt Date: 20090805
  Transmission Date: 20100115
  Serious: Yes (Hospitalization)
  Sender: FDA-Public Use
  Company Number: 1000008187

PATIENT
  Age: 47 Year
  Sex: Female

DRUGS (11)
  1. ESCITALOPRAM [Suspect]
     Dosage: 10 MG (10 MG, 1 IN 1 D), ORAL
     Route: 048
     Dates: end: 20090622
  2. BACTRIM DS [Suspect]
     Dosage: 1 DOSAGE FORMS (1 DOSAGE FORMS, 1 IN 1 D), ORAL
     Route: 048
  3. BACTRIM DS [Suspect]
     Dosage: ORAL
     Route: 048
  4. IMOVANE [Concomitant]
  5. LEVOTHYROX [Concomitant]
  6. DEDROGYL [Concomitant]
  7. NEORECORMON [Concomitant]
  8. TIORFAN [Concomitant]
  9. XYZAL [Concomitant]
  10. SPASFON [Concomitant]
  11. CALCIDOSE [Concomitant]

REACTIONS (4)
  - GASTROINTESTINAL DISORDER [None]
  - GRAND MAL CONVULSION [None]
  - HYPOMAGNESAEMIA [None]
  - MULTIPLE DRUG OVERDOSE [None]
